FAERS Safety Report 5724114-9 (Version None)
Quarter: 2008Q2

REPORT INFORMATION
  Report Type: 
  Country: None (occurrence: None)
  Receive Date: 20080430
  Receipt Date: 20080425
  Transmission Date: 20081010
  Serious: Yes (Hospitalization)
  Sender: FDA-Public Use
  Company Number: US-BOEHRINGER INGELHEIM GMBH, GERMANY-2008-BP-06645BP

PATIENT
  Sex: Female

DRUGS (4)
  1. MICARDIS [Suspect]
     Indication: HYPERTENSION
     Route: 048
  2. CLONIPINE [Concomitant]
  3. ZOMIG [Concomitant]
  4. MECLIZINE [Concomitant]

REACTIONS (7)
  - ATRIAL FIBRILLATION [None]
  - CHROMATURIA [None]
  - ELECTROCARDIOGRAM QT INTERVAL ABNORMAL [None]
  - FATIGUE [None]
  - HYPONATRAEMIA [None]
  - OEDEMA PERIPHERAL [None]
  - THIRST [None]
